FAERS Safety Report 9268841 (Version 7)
Quarter: 2014Q4

REPORT INFORMATION
  Report Type: Spontaneous
  Country: US (occurrence: US)
  Receive Date: 20130502
  Receipt Date: 20141124
  Transmission Date: 20150529
  Serious: Yes (Hospitalization, Other)
  Sender: FDA-Public Use
  Company Number: US-009507513-1304USA017092

PATIENT
  Sex: Female
  Weight: 61.68 kg

DRUGS (6)
  1. ALENDRONATE SODIUM. [Suspect]
     Active Substance: ALENDRONATE SODIUM
     Indication: OSTEOPENIA
     Dosage: 70 MG QW
     Route: 048
     Dates: start: 2008, end: 201004
  2. FOSAMAX [Suspect]
     Active Substance: ALENDRONATE SODIUM
     Indication: OSTEOPENIA
     Dosage: 10 MG, UNK
     Route: 048
     Dates: start: 1999, end: 2008
  3. VITAMINS (UNSPECIFIED) [Concomitant]
     Active Substance: VITAMINS
     Dosage: ONE DAILY
     Route: 048
     Dates: start: 1998
  4. ASCORBIC ACID. [Concomitant]
     Active Substance: ASCORBIC ACID
     Dosage: 500 MG, QD
     Route: 048
     Dates: start: 1998
  5. FOSAMAX [Suspect]
     Active Substance: ALENDRONATE SODIUM
     Dosage: 70 MG, QW
     Route: 048
  6. PROTONIX [Concomitant]
     Active Substance: PANTOPRAZOLE SODIUM
     Indication: GASTROOESOPHAGEAL REFLUX DISEASE
     Dosage: UNK, BID
     Route: 048
     Dates: start: 2001

REACTIONS (59)
  - Rib fracture [Unknown]
  - Spinal osteoarthritis [Unknown]
  - Hand fracture [Unknown]
  - Blood sodium decreased [Unknown]
  - Osteoarthritis [Unknown]
  - Breast lump removal [Unknown]
  - Osteoarthritis [Unknown]
  - Ecchymosis [Unknown]
  - Fall [Unknown]
  - Fracture malunion [Unknown]
  - Radiotherapy [Unknown]
  - Device dislocation [Unknown]
  - Radius fracture [Recovered/Resolved]
  - Osteochondroma [Unknown]
  - Protein albumin ratio decreased [Unknown]
  - Liver function test abnormal [Recovered/Resolved]
  - Device failure [Unknown]
  - Femur fracture [Unknown]
  - Intramedullary rod insertion [Unknown]
  - Shoulder arthroplasty [Unknown]
  - Anaemia [Unknown]
  - Shoulder operation [Unknown]
  - Rheumatoid arthritis [Unknown]
  - Blood pressure decreased [Recovering/Resolving]
  - Breast cancer [Unknown]
  - Cerebrovascular accident [Unknown]
  - Bone graft [Unknown]
  - Fall [Unknown]
  - Osteoporosis [Unknown]
  - Exostosis [Unknown]
  - Blood urea nitrogen/creatinine ratio decreased [Unknown]
  - Joint dislocation [Unknown]
  - Pain in extremity [Unknown]
  - Device failure [Unknown]
  - Wrist fracture [Unknown]
  - Internal fixation of fracture [Unknown]
  - Haemorrhagic anaemia [Recovering/Resolving]
  - Impaired healing [Unknown]
  - Hypertension [Unknown]
  - Scoliosis [Unknown]
  - Carpal tunnel decompression [Unknown]
  - Fracture reduction [Unknown]
  - Open reduction of fracture [Unknown]
  - Hyperlipidaemia [Unknown]
  - Adverse event [Unknown]
  - Fall [Unknown]
  - Wrist surgery [Unknown]
  - Rib fracture [Unknown]
  - Intervertebral disc degeneration [Unknown]
  - Blood calcium decreased [Unknown]
  - Fracture nonunion [Unknown]
  - Internal fixation of fracture [Unknown]
  - Rotator cuff repair [Unknown]
  - Open reduction of fracture [Unknown]
  - Asthma [Unknown]
  - Medical device removal [Unknown]
  - Joint dislocation [Unknown]
  - Constipation [Unknown]
  - Bursitis [Unknown]

NARRATIVE: CASE EVENT DATE: 1999
